FAERS Safety Report 8769868 (Version 1)
Quarter: 2012Q4

REPORT INFORMATION
  Report Type: 
  Country: US (occurrence: US)
  Receive Date: 20120906
  Receipt Date: 20120906
  Transmission Date: 20130627
  Serious: No
  Sender: FDA-Public Use
  Company Number: US-ASTRAZENECA-2012SE57941

PATIENT
  Age: 55 Year
  Weight: 60.8 kg

DRUGS (7)
  1. NEXIUM [Suspect]
     Indication: GASTROOESOPHAGEAL REFLUX DISEASE
     Route: 048
     Dates: start: 2011, end: 201208
  2. NEXIUM [Suspect]
     Indication: INFLAMMATION
     Route: 048
     Dates: start: 2011, end: 201208
  3. NEXIUM [Suspect]
     Indication: GASTROOESOPHAGEAL REFLUX DISEASE
     Route: 048
     Dates: start: 201208
  4. NEXIUM [Suspect]
     Indication: INFLAMMATION
     Route: 048
     Dates: start: 201208
  5. LEVOTHYROXINE [Concomitant]
     Indication: THYROID DISORDER
  6. SIMVASTATIN [Concomitant]
     Indication: BLOOD CHOLESTEROL
  7. CALCIUM TABLETS [Concomitant]

REACTIONS (2)
  - Weight decreased [Unknown]
  - Off label use [Unknown]
